FAERS Safety Report 22267547 (Version 1)
Quarter: 2023Q2

REPORT INFORMATION
  Report Type: Spontaneous
  Country: JP (occurrence: JP)
  Receive Date: 20230430
  Receipt Date: 20230430
  Transmission Date: 20230721
  Serious: Yes (Death, Hospitalization)
  Sender: FDA-Public Use
  Company Number: JP-STRIDES ARCOLAB LIMITED-2023SP005994

PATIENT
  Age: 57 Year
  Sex: Male

DRUGS (2)
  1. COLCHICINE [Suspect]
     Active Substance: COLCHICINE
     Indication: Gout
     Dosage: 4 MILLIGRAM PER DAY
     Route: 065
  2. NAPROXEN [Concomitant]
     Active Substance: NAPROXEN
     Indication: Gout
     Dosage: 300 MILLIGRAM PER DAY
     Route: 065

REACTIONS (14)
  - Hypovolaemic shock [Fatal]
  - Multiple organ dysfunction syndrome [Fatal]
  - Sepsis [Fatal]
  - Infection [Fatal]
  - Toxicity to various agents [Fatal]
  - Decreased appetite [Unknown]
  - Dehydration [Unknown]
  - Tachycardia [Unknown]
  - Tachypnoea [Unknown]
  - Leukopenia [Unknown]
  - Diarrhoea [Unknown]
  - Thrombocytopenia [Unknown]
  - Liver disorder [Unknown]
  - Renal failure [Unknown]
